FAERS Safety Report 7060704-1 (Version None)
Quarter: 2010Q4

REPORT INFORMATION
  Report Type: 
  Country: None (occurrence: None)
  Receive Date: 20101025
  Receipt Date: 20101013
  Transmission Date: 20110411
  Serious: Yes (Death, Other)
  Sender: FDA-Public Use
  Company Number: JP-ROCHE-734481

PATIENT
  Age: 50 Year
  Sex: Female

DRUGS (5)
  1. CELLCEPT [Suspect]
     Route: 048
  2. CELLCEPT [Suspect]
     Dosage: DOSE DECREASED
     Route: 048
  3. CELLCEPT [Suspect]
     Route: 048
  4. METHYLPREDNISOLONE [Concomitant]
  5. METHYLPREDNISOLONE [Concomitant]

REACTIONS (14)
  - ACUTE RESPIRATORY FAILURE [None]
  - ARTERY DISSECTION [None]
  - ASCITES [None]
  - ASPARTATE AMINOTRANSFERASE INCREASED [None]
  - CIRCULATORY COLLAPSE [None]
  - CYSTITIS VIRAL [None]
  - CYTOMEGALOVIRUS TEST POSITIVE [None]
  - PARAOESOPHAGEAL ABSCESS [None]
  - PLATELET COUNT DECREASED [None]
  - PNEUMONIA [None]
  - PSEUDOMONAS INFECTION [None]
  - PULMONARY OEDEMA [None]
  - SEPSIS [None]
  - WHITE BLOOD CELL COUNT DECREASED [None]
